FAERS Safety Report 19513284 (Version 1)
Quarter: 2021Q3

REPORT INFORMATION
  Report Type: Spontaneous
  Country: CZ (occurrence: CZ)
  Receive Date: 20210709
  Receipt Date: 20210709
  Transmission Date: 20211014
  Serious: Yes (Hospitalization, Other)
  Sender: FDA-Public Use
  Company Number: CZ-FRESENIUS KABI-FK202106964

PATIENT
  Age: 63 Year

DRUGS (4)
  1. DAUNORUBICIN [Suspect]
     Active Substance: DAUNORUBICIN
     Indication: ACUTE MYELOID LEUKAEMIA
     Dosage: INDUCTION THERAPY
     Route: 065
  2. FLUCONAZOLE. [Concomitant]
     Active Substance: FLUCONAZOLE
     Indication: ANTIFUNGAL PROPHYLAXIS
     Dosage: 200MG/DAY
     Route: 065
     Dates: start: 201701
  3. CYTARABINE (MANUFACTURER UNKNOWN) [Suspect]
     Active Substance: CYTARABINE
     Dosage: LOW?DOSE CYTOSINE ARABINOSIDE
     Route: 065
  4. CYTARABINE (MANUFACTURER UNKNOWN) [Suspect]
     Active Substance: CYTARABINE
     Indication: ACUTE MYELOID LEUKAEMIA
     Dosage: CYTOSIN?ARABINOSID?INDUCTION THERAPY
     Route: 065

REACTIONS (2)
  - Enterobacter sepsis [Unknown]
  - Cellulitis [Unknown]

NARRATIVE: CASE EVENT DATE: 201702
